FAERS Safety Report 15084468 (Version 1)
Quarter: 2018Q2

REPORT INFORMATION
  Report Type: Spontaneous
  Country: JP (occurrence: JP)
  Receive Date: 20180628
  Receipt Date: 20180628
  Transmission Date: 20180711
  Serious: Yes (Other)
  Sender: FDA-Public Use
  Company Number: JP-TAKEDA-2018MPI008626

PATIENT

DRUGS (3)
  1. DEXAMETHASONE. [Concomitant]
     Active Substance: DEXAMETHASONE
     Indication: PLASMA CELL MYELOMA
     Dosage: DOSAGE FORM: UNSPECIFIED
     Route: 048
  2. VELCADE [Suspect]
     Active Substance: BORTEZOMIB
     Indication: PLASMA CELL MYELOMA
     Dosage: 1.3 MG/M2, UNK
     Route: 065
  3. ACYCLOVIR                          /00587301/ [Concomitant]
     Active Substance: ACYCLOVIR
     Indication: ANTIVIRAL PROPHYLAXIS
     Dosage: UNK
     Route: 065

REACTIONS (34)
  - Hepatitis B reactivation [Unknown]
  - Meningitis bacterial [Unknown]
  - Hyperglycaemia [Unknown]
  - Leukopenia [Unknown]
  - Thrombocytopenia [Unknown]
  - Nausea [Unknown]
  - Constipation [Unknown]
  - Hypernatraemia [Unknown]
  - Hypokalaemia [Unknown]
  - Anaemia [Unknown]
  - Pneumonia [Unknown]
  - Neutropenia [Unknown]
  - Rash [Unknown]
  - Alanine aminotransferase increased [Unknown]
  - Pharyngitis [Unknown]
  - Blood alkaline phosphatase increased [Unknown]
  - Diarrhoea [Unknown]
  - Decreased appetite [Unknown]
  - Hypoalbuminaemia [Unknown]
  - Hypercalcaemia [Unknown]
  - Fatigue [Unknown]
  - Peripheral motor neuropathy [Unknown]
  - Blood creatinine increased [Unknown]
  - Mucosal inflammation [Unknown]
  - Hyponatraemia [Unknown]
  - Peripheral sensory neuropathy [Unknown]
  - Hypocalcaemia [Unknown]
  - Hyperkalaemia [Unknown]
  - Vomiting [Unknown]
  - Pyrexia [Unknown]
  - Ileus paralytic [Unknown]
  - Aspartate aminotransferase increased [Unknown]
  - Somnolence [Unknown]
  - Pneumonitis [Unknown]
